FAERS Safety Report 18491471 (Version 2)
Quarter: 2021Q3

REPORT INFORMATION
  Report Type: Spontaneous
  Country: GB (occurrence: GB)
  Receive Date: 20201111
  Receipt Date: 20210709
  Transmission Date: 20211014
  Serious: Yes (Hospitalization)
  Sender: FDA-Public Use
  Company Number: GB-VERTEX PHARMACEUTICALS-2020-019816

PATIENT
  Age: 30 Year
  Sex: Female

DRUGS (3)
  1. KAFTRIO [Suspect]
     Active Substance: ELEXACAFTOR\IVACAFTOR\TEZACAFTOR
     Dosage: 1 TABLET A DAY
     Route: 048
     Dates: start: 20201222
  2. KAFTRIO [Suspect]
     Active Substance: ELEXACAFTOR\IVACAFTOR\TEZACAFTOR
     Indication: CYSTIC FIBROSIS
     Dosage: 2 TABS (75MG IVACAFTOR/ 50MG TEZACAFTOR/ 100MG ELEXACAFTOR)QD
     Route: 048
     Dates: start: 20200930
  3. KALYDECO [Suspect]
     Active Substance: IVACAFTOR
     Indication: CYSTIC FIBROSIS
     Dosage: 150 MG IN EVENING
     Route: 048
     Dates: start: 20200930

REACTIONS (17)
  - Haemoptysis [Recovered/Resolved]
  - Migraine [Unknown]
  - Feeling abnormal [Not Recovered/Not Resolved]
  - Productive cough [Recovering/Resolving]
  - Headache [Recovered/Resolved]
  - Bronchial secretion retention [Recovered/Resolved]
  - Hemiplegic migraine [Recovered/Resolved]
  - Anger [Not Recovered/Not Resolved]
  - Malaise [Not Recovered/Not Resolved]
  - Eye pain [Not Recovered/Not Resolved]
  - C-reactive protein increased [Unknown]
  - Syncope [Unknown]
  - Vaginal haemorrhage [Not Recovered/Not Resolved]
  - Sinus pain [Recovered/Resolved]
  - Fatigue [Not Recovered/Not Resolved]
  - Vomiting [Recovered/Resolved]
  - Movement disorder [Unknown]

NARRATIVE: CASE EVENT DATE: 2020
